FAERS Safety Report 8463329-6 (Version None)
Quarter: 2012Q2

REPORT INFORMATION
  Report Type: 
  Country: None (occurrence: None)
  Receive Date: 20120625
  Receipt Date: 20120622
  Transmission Date: 20120825
  Serious: Yes (Hospitalization, Other)
  Sender: FDA-Public Use
  Company Number: US-PFIZER INC-2009289663

PATIENT
  Sex: Female

DRUGS (5)
  1. CHANTIX [Suspect]
     Dosage: UNK
     Dates: start: 20090101
  2. NICORETTE [Concomitant]
     Dosage: UNK
  3. NICODERM [Concomitant]
     Dosage: UNK
  4. PHENTERMINE [Concomitant]
     Dosage: 37.5 MG, UNK
     Dates: start: 20090101
  5. NICOTROL [Suspect]
     Dosage: UNK
     Route: 055

REACTIONS (6)
  - SUICIDE ATTEMPT [None]
  - DYSGEUSIA [None]
  - LIVER INJURY [None]
  - DEPRESSION [None]
  - NAUSEA [None]
  - DRUG INEFFECTIVE [None]
